FAERS Safety Report 5922090-7 (Version None)
Quarter: 2008Q4

REPORT INFORMATION
  Report Type: 
  Country: None (occurrence: None)
  Receive Date: 20081017
  Receipt Date: 20081016
  Transmission Date: 20090506
  Serious: Yes (Hospitalization)
  Sender: FDA-Public Use
  Company Number: B0542021A

PATIENT
  Age: 66 Year
  Sex: Female
  Weight: 86 kg

DRUGS (5)
  1. LAPATINIB [Suspect]
     Dosage: 1250MG PER DAY
     Dates: start: 20080904
  2. EPIRUBICIN [Suspect]
     Dosage: 160MG PER DAY
     Dates: start: 20080904
  3. EMCOR [Concomitant]
     Dosage: 5MG PER DAY
     Route: 048
  4. DIAMICRON [Concomitant]
     Dosage: 40MG PER DAY
     Route: 048
  5. UNKNOWN DRUG [Concomitant]
     Dosage: 2.5MG PER DAY
     Route: 048

REACTIONS (2)
  - BREAST CELLULITIS [None]
  - PYREXIA [None]
